FAERS Safety Report 26088316 (Version 1)
Quarter: 2025Q4

REPORT INFORMATION
  Report Type: Spontaneous
  Country: US (occurrence: None)
  Receive Date: 20251125
  Receipt Date: 20251125
  Transmission Date: 20260118
  Serious: Yes (Hospitalization)
  Sender: FDA-CTU
  Company Number: None

PATIENT
  Sex: Female

DRUGS (2)
  1. OCTAGAM IMMUNE GLOBULIN (HUMAN) [Suspect]
     Active Substance: HUMAN IMMUNOGLOBULIN G
     Indication: Chronic inflammatory demyelinating polyradiculoneuropathy
     Dosage: OTHER STRENGTH : 20GM/200ML;?OTHER FREQUENCY : 2 DAYS Q 3 WEEKS;?
     Route: 042
     Dates: start: 20241231
  2. OCTAGAM IMMUNE GLOBULIN (HUMAN) [Suspect]
     Active Substance: HUMAN IMMUNOGLOBULIN G
     Indication: Chronic inflammatory demyelinating polyradiculoneuropathy
     Dosage: OTHER STRENGTH : 5GM/50ML;?OTHER FREQUENCY : 2 DAYS Q 3 WEEKS;?
     Route: 042
     Dates: start: 20241231

REACTIONS (2)
  - Chest pain [None]
  - Dyspnoea [None]
